FAERS Safety Report 20785890 (Version 1)
Quarter: 2022Q2

REPORT INFORMATION
  Report Type: Spontaneous
  Country: US (occurrence: None)
  Receive Date: 20220504
  Receipt Date: 20220504
  Transmission Date: 20220721
  Serious: No
  Sender: FDA-Public Use
  Company Number: US-ROCHE-2812099

PATIENT
  Sex: Female

DRUGS (2)
  1. OCREVUS [Suspect]
     Active Substance: OCRELIZUMAB
     Indication: Multiple sclerosis
     Dosage: 600 MG SPLIT DAY 1 AND DAY 15 ;ONGOING: UNKNOWN
     Route: 042
  2. OCREVUS [Suspect]
     Active Substance: OCRELIZUMAB
     Dosage: 600 MG SPLIT DAY 1 AND DAY 15 ;ONGOING: UNKNOWN
     Route: 042

REACTIONS (3)
  - Dry eye [Unknown]
  - Dry skin [Unknown]
  - Throat irritation [Unknown]
